FAERS Safety Report 9400089 (Version 1)
Quarter: 2013Q2

REPORT INFORMATION
  Report Type: Spontaneous
  Country: JP (occurrence: None)
  Receive Date: 20130618
  Receipt Date: 20130618
  Transmission Date: 20140414
  Serious: Yes (Death, Hospitalization)
  Sender: FDA-Public Use
  Company Number: TC2012A05429

PATIENT
  Age: 80 Year
  Sex: Male

DRUGS (5)
  1. NESINA [Suspect]
     Indication: DIABETES MELLITUS
     Dosage: 6.25 MG, 1 IN 1 D
     Route: 048
     Dates: start: 201112, end: 20120711
  2. DIART [Concomitant]
  3. ZYLORIC [Concomitant]
  4. LASIX (FUROSEMIDE) [Concomitant]
  5. NESP [Concomitant]

REACTIONS (9)
  - Histiocytosis haematophagic [None]
  - Liver disorder [None]
  - Bone marrow failure [None]
  - Cholangitis [None]
  - Cholecystitis [None]
  - Renal cyst [None]
  - Nephrolithiasis [None]
  - Hepatitis acute [None]
  - Lymphocyte stimulation test positive [None]
